FAERS Safety Report 25446887 (Version 3)
Quarter: 2025Q2

REPORT INFORMATION
  Report Type: Report from Study
  Country: US (occurrence: US)
  Receive Date: 20250617
  Receipt Date: 20250627
  Transmission Date: 20250716
  Serious: Yes (Other)
  Sender: ABBVIE
  Company Number: US-ABBVIE-6327610

PATIENT
  Age: 56 Year
  Sex: Male

DRUGS (3)
  1. RINVOQ [Suspect]
     Active Substance: UPADACITINIB
     Indication: Rheumatoid arthritis
     Route: 048
     Dates: start: 20230829
  2. RINVOQ [Suspect]
     Active Substance: UPADACITINIB
     Indication: Rheumatoid arthritis
     Route: 048
     Dates: start: 20150101
  3. RINVOQ [Suspect]
     Active Substance: UPADACITINIB
     Indication: Rheumatoid arthritis
     Route: 048
     Dates: start: 20250528

REACTIONS (5)
  - Neck surgery [Unknown]
  - Spinal operation [Recovering/Resolving]
  - Spinal operation [Recovering/Resolving]
  - Spinal operation [Recovering/Resolving]
  - Spinal operation [Recovering/Resolving]

NARRATIVE: CASE EVENT DATE: 20240801
